FAERS Safety Report 8015222-0 (Version None)
Quarter: 2011Q4

REPORT INFORMATION
  Report Type: 
  Country: None (occurrence: None)
  Receive Date: 20111230
  Receipt Date: 20111228
  Transmission Date: 20120403
  Serious: No
  Sender: FDA-Public Use
  Company Number: US-BIOGENIDEC-2011BI048904

PATIENT
  Age: 43 Year
  Sex: Male

DRUGS (3)
  1. TYSABRI [Suspect]
     Indication: MULTIPLE SCLEROSIS
     Route: 042
     Dates: start: 20060901
  2. TYSABRI [Suspect]
     Route: 042
     Dates: start: 20070220
  3. AVONEX [Concomitant]
     Indication: MULTIPLE SCLEROSIS
     Route: 030

REACTIONS (3)
  - MUSCLE SPASTICITY [None]
  - YAWNING [None]
  - ASTHENIA [None]
